FAERS Safety Report 10913662 (Version 5)
Quarter: 2015Q2

REPORT INFORMATION
  Report Type: Spontaneous
  Country: AU (occurrence: AU)
  Receive Date: 20150313
  Receipt Date: 20150506
  Transmission Date: 20150821
  Serious: Yes (Hospitalization, Other)
  Sender: FDA-Public Use
  Company Number: AU-IPSEN BIOPHARMACEUTICALS, INC.-2015-3679

PATIENT
  Age: 28 Year
  Sex: Female

DRUGS (5)
  1. DYSPORT [Suspect]
     Active Substance: ABOBOTULINUMTOXINA
     Indication: FACE LIFT
     Dosage: 25 UNITS
     Route: 058
     Dates: start: 20150210, end: 20150210
  2. DYSPORT [Suspect]
     Active Substance: ABOBOTULINUMTOXINA
     Indication: SKIN WRINKLING
     Dosage: 25 UNITS
     Route: 065
     Dates: start: 20141224, end: 20141224
  3. DYSPORT [Suspect]
     Active Substance: ABOBOTULINUMTOXINA
     Indication: SKIN WRINKLING
     Dosage: 32 UNITS
     Route: 065
     Dates: start: 20140812, end: 20140812
  4. DYSPORT [Suspect]
     Active Substance: ABOBOTULINUMTOXINA
     Indication: SKIN WRINKLING
  5. DYSPORT [Suspect]
     Active Substance: ABOBOTULINUMTOXINA
     Indication: PRODUCT USE ISSUE

REACTIONS (35)
  - Panic attack [Recovering/Resolving]
  - Incorrect route of drug administration [Unknown]
  - Diarrhoea [Recovering/Resolving]
  - Disturbance in attention [Unknown]
  - Lethargy [Unknown]
  - Dizziness [Unknown]
  - Memory impairment [Unknown]
  - Epistaxis [Unknown]
  - Neck pain [Not Recovered/Not Resolved]
  - Stress [Unknown]
  - Abasia [Recovering/Resolving]
  - Vitreous floaters [Not Recovered/Not Resolved]
  - Tunnel vision [Not Recovered/Not Resolved]
  - Vision blurred [Not Recovered/Not Resolved]
  - Neuromuscular toxicity [Unknown]
  - Vomiting [Unknown]
  - Paraesthesia [Unknown]
  - Oropharyngeal pain [Unknown]
  - Inappropriate schedule of drug administration [Unknown]
  - Inflammation [Unknown]
  - Confusional state [Recovering/Resolving]
  - Anxiety [Not Recovered/Not Resolved]
  - Muscle spasms [Unknown]
  - Nausea [Recovering/Resolving]
  - Pallor [Unknown]
  - Musculoskeletal stiffness [Unknown]
  - Ear disorder [Unknown]
  - Headache [Recovering/Resolving]
  - Asthenia [Unknown]
  - Chills [Unknown]
  - Fatigue [Unknown]
  - Type IV hypersensitivity reaction [Recovering/Resolving]
  - Hypoaesthesia [Unknown]
  - Gingival bleeding [Unknown]
  - Influenza like illness [Not Recovered/Not Resolved]

NARRATIVE: CASE EVENT DATE: 2015
